FAERS Safety Report 4421563-6 (Version None)
Quarter: 2004Q3

REPORT INFORMATION
  Report Type: 
  Country: None (occurrence: None)
  Receive Date: 20040804
  Receipt Date: 20040712
  Transmission Date: 20050211
  Serious: Yes (Hospitalization)
  Sender: FDA-Public Use
  Company Number: USA031049008

PATIENT
  Age: 73 Year
  Sex: Female

DRUGS (2)
  1. FORTEO [Suspect]
     Indication: OSTEOPOROSIS
     Dosage: 20 UG DAY
     Dates: start: 20031002
  2. CARITASONE [Concomitant]

REACTIONS (7)
  - BACK PAIN [None]
  - ERYTHEMA [None]
  - FALL [None]
  - OEDEMA PERIPHERAL [None]
  - PYREXIA [None]
  - SKIN LACERATION [None]
  - SKIN WARM [None]
